FAERS Safety Report 23977374 (Version 1)
Quarter: 2024Q2

REPORT INFORMATION
  Report Type: Spontaneous
  Country: US (occurrence: None)
  Receive Date: 20240613
  Receipt Date: 20240613
  Transmission Date: 20240715
  Serious: Yes (Hospitalization)
  Sender: FDA-Public Use
  Company Number: None

PATIENT
  Sex: Female

DRUGS (1)
  1. XELJANZ [Suspect]
     Active Substance: TOFACITINIB CITRATE
     Indication: Rheumatoid arthritis
     Dosage: 5MG TWICE A DAY ORAL
     Route: 048
     Dates: start: 20201223

REACTIONS (5)
  - Joint swelling [None]
  - Arthralgia [None]
  - Peripheral swelling [None]
  - Chest pain [None]
  - Back pain [None]
